FAERS Safety Report 17743675 (Version 2)
Quarter: 2020Q2

REPORT INFORMATION
  Report Type: Spontaneous
  Country: CN (occurrence: CN)
  Receive Date: 20200505
  Receipt Date: 20200513
  Transmission Date: 20200714
  Serious: Yes (Hospitalization)
  Sender: FDA-Public Use
  Company Number: CN-ROCHE-2592472

PATIENT
  Age: 68 Year
  Sex: Female
  Weight: 48 kg

DRUGS (9)
  1. FLUOROURACIL. [Suspect]
     Active Substance: FLUOROURACIL
     Indication: METASTASES TO LIVER
     Route: 041
     Dates: start: 20200417, end: 20200417
  2. SODIUM CHLORIDE. [Concomitant]
     Active Substance: SODIUM CHLORIDE
     Dosage: ONCE
     Route: 041
     Dates: start: 20200418, end: 20200418
  3. OXALIPLATIN. [Suspect]
     Active Substance: OXALIPLATIN
     Indication: METASTASES TO LIVER
     Route: 041
     Dates: start: 20200417, end: 20200417
  4. GLUCOSE [Concomitant]
     Active Substance: DEXTROSE
     Indication: METASTASES TO LIVER
     Dosage: ONCE
     Route: 041
     Dates: start: 20200417, end: 20200417
  5. SODIUM CHLORIDE. [Concomitant]
     Active Substance: SODIUM CHLORIDE
     Indication: METASTASES TO LIVER
     Dosage: ONCE
     Route: 041
     Dates: start: 20200417, end: 20200417
  6. AVASTIN [Suspect]
     Active Substance: BEVACIZUMAB
     Indication: METASTASES TO LIVER
     Dosage: ONCE
     Route: 041
     Dates: start: 20200418, end: 20200418
  7. FLUOROURACIL. [Suspect]
     Active Substance: FLUOROURACIL
     Route: 041
     Dates: start: 20200418, end: 20200418
  8. FLUOROURACIL. [Suspect]
     Active Substance: FLUOROURACIL
     Route: 041
     Dates: start: 20200417, end: 20200417
  9. CALCIUM FOLINATE [Suspect]
     Active Substance: LEUCOVORIN CALCIUM
     Indication: METASTASES TO LIVER
     Dosage: ONCE
     Route: 041
     Dates: start: 20200417, end: 20200417

REACTIONS (1)
  - Bone marrow failure [Recovering/Resolving]

NARRATIVE: CASE EVENT DATE: 20200420
